FAERS Safety Report 6602616-0 (Version None)
Quarter: 2010Q1

REPORT INFORMATION
  Report Type: 
  Country: None (occurrence: None)
  Receive Date: 20100225
  Receipt Date: 20100219
  Transmission Date: 20100710
  Serious: Yes (Death)
  Sender: FDA-Public Use
  Company Number: GB-AMGEN-US381871

PATIENT
  Sex: Male
  Weight: 96 kg

DRUGS (7)
  1. ENBREL [Suspect]
     Indication: RHEUMATOID ARTHRITIS
     Dosage: 25MG (FREQUENCY UNKNOWN)
     Route: 058
     Dates: start: 20030101, end: 20090101
  2. BENDROFLUMETHIAZIDE [Concomitant]
     Dosage: UNKNOWN
  3. RAMIPRIL [Concomitant]
     Dosage: UNKNOWN
  4. AMLODIPINE [Concomitant]
     Dosage: UNKNOWN
  5. SIMVASTATIN [Concomitant]
     Dosage: UNKNOWN
  6. PREDNISOLONE [Concomitant]
     Dosage: 5G (FREQUENCY UNKNOWN)
  7. ACETYLSALICYLIC ACID [Concomitant]
     Dosage: UNKNOWN

REACTIONS (1)
  - METASTATIC GASTRIC CANCER [None]
